FAERS Safety Report 6656941-8 (Version None)
Quarter: 2010Q1

REPORT INFORMATION
  Report Type: 
  Country: None (occurrence: None)
  Receive Date: 20100329
  Receipt Date: 20100329
  Transmission Date: 20100710
  Serious: Yes (Life-Threatening, Hospitalization)
  Sender: FDA-Public Use
  Company Number: None

PATIENT
  Age: 21 Year
  Sex: Female
  Weight: 77 kg

DRUGS (1)
  1. BACTRIM [Suspect]
     Indication: DRUG USE FOR UNKNOWN INDICATION
     Dosage: 1600/320 MG BID ORAL 047
     Route: 048

REACTIONS (7)
  - ABDOMINAL PAIN [None]
  - COAGULOPATHY [None]
  - HEADACHE [None]
  - JAUNDICE [None]
  - LIVER TRANSPLANT [None]
  - RASH [None]
  - RENAL FAILURE [None]
